FAERS Safety Report 6341733-X (Version None)
Quarter: 2009Q3

REPORT INFORMATION
  Report Type: 
  Country: None (occurrence: None)
  Receive Date: 20090904
  Receipt Date: 20090824
  Transmission Date: 20100115
  Serious: Yes (Other)
  Sender: FDA-Public Use
  Company Number: GB-PFIZER INC-2009258467

PATIENT
  Age: 82 Year

DRUGS (3)
  1. SERTRALINE HCL [Suspect]
     Route: 048
     Dates: start: 20090714
  2. ADCAL-D3 [Concomitant]
  3. ALENDRONIC ACID [Concomitant]

REACTIONS (3)
  - DIARRHOEA [None]
  - HAIR GROWTH ABNORMAL [None]
  - NAUSEA [None]
